FAERS Safety Report 9146084 (Version 1)
Quarter: 2013Q1

REPORT INFORMATION
  Report Type: Report from Study
  Country: US (occurrence: US)
  Receive Date: 20130307
  Receipt Date: 20130307
  Transmission Date: 20140127
  Serious: No
  Sender: FDA-Public Use
  Company Number: US-VERTEX PHARMACEUTICALS INC.-2013-003081

PATIENT
  Sex: Female

DRUGS (12)
  1. VX-950 (TELAPREVIR) [Suspect]
     Indication: HEPATITIS C
     Dosage: 750 MG, TID
     Route: 048
     Dates: start: 2013
  2. RIBAPAK [Suspect]
     Indication: HEPATITIS C
     Dosage: 600 MG, BID
     Route: 048
     Dates: start: 2013
  3. PEGASYS [Suspect]
     Indication: HEPATITIS C
     Dosage: 180 ?G, WEEKLY
     Route: 058
     Dates: start: 2013
  4. LITHIUM CARBONATE [Concomitant]
     Dosage: 300 MG, QD
     Route: 048
  5. CLONAZEPAM [Concomitant]
     Dosage: 1 MG, QD
     Route: 048
  6. LAMICTAL [Concomitant]
     Dosage: 200 MG, QD
     Route: 048
  7. ONDANSETRON HCL [Concomitant]
     Dosage: 1 DF, PRN
     Route: 048
  8. BUPROPION [Concomitant]
     Dosage: 150 MG, QD
     Route: 048
  9. CYCLOBENZAPRINE [Concomitant]
     Dosage: 10 MG, QD
     Route: 048
  10. TOPAMAX [Concomitant]
     Dosage: 100 MG, QD
     Route: 048
  11. OMEPRAZOLE [Concomitant]
     Dosage: 20 MG, QD
     Route: 048
  12. VITAMIN D2 [Concomitant]
     Dosage: 1 DF, QD
     Route: 048

REACTIONS (1)
  - Rash generalised [Unknown]
